FAERS Safety Report 22271253 (Version 1)
Quarter: 2023Q2

REPORT INFORMATION
  Report Type: Spontaneous
  Country: US (occurrence: US)
  Receive Date: 20230501
  Receipt Date: 20230501
  Transmission Date: 20230721
  Serious: Yes (Hospitalization, Other)
  Sender: FDA-Public Use
  Company Number: US-MALLINCKRODT-MNK202301412

PATIENT
  Age: 69 Year
  Sex: Female

DRUGS (5)
  1. CORTICOTROPIN [Suspect]
     Active Substance: CORTICOTROPIN
     Indication: Corneal oedema
     Dosage: 80 UNITS/1 ML TWICE WEEKLY
     Route: 058
     Dates: start: 202112
  2. CORTICOTROPIN [Suspect]
     Active Substance: CORTICOTROPIN
     Indication: Corneal dystrophy
  3. CORTICOTROPIN [Suspect]
     Active Substance: CORTICOTROPIN
     Indication: Iris vascular disorder
  4. CORTICOTROPIN [Suspect]
     Active Substance: CORTICOTROPIN
     Indication: Ciliary body disorder
  5. CORTICOTROPIN [Suspect]
     Active Substance: CORTICOTROPIN
     Indication: Punctate keratitis

REACTIONS (5)
  - Tooth disorder [Unknown]
  - Blindness [Unknown]
  - Corneal disorder [Not Recovered/Not Resolved]
  - Corneal operation [Unknown]
  - Infection [Unknown]
